FAERS Safety Report 13027952 (Version 1)
Quarter: 2016Q4

REPORT INFORMATION
  Report Type: Spontaneous
  Country: US (occurrence: US)
  Receive Date: 20161214
  Receipt Date: 20161214
  Transmission Date: 20170207
  Serious: Yes (Hospitalization)
  Sender: FDA-Public Use
  Company Number: US-VERTEX PHARMACEUTICALS-2016-006941

PATIENT
  Sex: Female

DRUGS (17)
  1. MIRALAX [Concomitant]
     Active Substance: POLYETHYLENE GLYCOL 3350
  2. VITAMIN A [Concomitant]
     Active Substance: VITAMIN A
  3. CLOTRIMAZOLE. [Concomitant]
     Active Substance: CLOTRIMAZOLE
  4. NOVOLOG [Concomitant]
     Active Substance: INSULIN ASPART
  5. PULMOZYME [Suspect]
     Active Substance: DORNASE ALFA
     Dosage: 2.5 ML, QD
     Route: 055
     Dates: start: 20140325
  6. RANITIDINE. [Concomitant]
     Active Substance: RANITIDINE
  7. MONTELUKAST [Concomitant]
     Active Substance: MONTELUKAST SODIUM
  8. KALYDECO [Suspect]
     Active Substance: IVACAFTOR
     Indication: CYSTIC FIBROSIS
     Dosage: 150 MG, BID
     Route: 048
     Dates: start: 20130911
  9. OMEPRAZOLE. [Concomitant]
     Active Substance: OMEPRAZOLE
  10. OXYBUTYNIN [Concomitant]
     Active Substance: OXYBUTYNIN
  11. SODIUM CHLORIDE. [Concomitant]
     Active Substance: SODIUM CHLORIDE
  12. COLISTIN [Concomitant]
     Active Substance: COLISTIN
  13. CETRIZINE [Concomitant]
     Active Substance: CETIRIZINE HYDROCHLORIDE
  14. EFFEXOR [Concomitant]
     Active Substance: VENLAFAXINE HYDROCHLORIDE
  15. BUPROPION. [Concomitant]
     Active Substance: BUPROPION
  16. IPRATROPIUM [Concomitant]
     Active Substance: IPRATROPIUM
  17. FEXOFENADINE [Concomitant]
     Active Substance: FEXOFENADINE\FEXOFENADINE HYDROCHLORIDE

REACTIONS (1)
  - Hospitalisation [Unknown]

NARRATIVE: CASE EVENT DATE: 2016
